FAERS Safety Report 22968028 (Version 3)
Quarter: 2023Q4

REPORT INFORMATION
  Report Type: Spontaneous
  Country: CH (occurrence: CH)
  Receive Date: 20230921
  Receipt Date: 20231023
  Transmission Date: 20240110
  Serious: Yes (Other)
  Sender: FDA-Public Use
  Company Number: CH-GILEAD-2023-0644743

PATIENT
  Age: 68 Year
  Sex: Female

DRUGS (7)
  1. YESCARTA [Suspect]
     Active Substance: AXICABTAGENE CILOLEUCEL
     Indication: Diffuse large B-cell lymphoma
     Dosage: 68 ML, 2.0 X 10^6 ANTI-CD19 CAR T CELLS/KG
     Route: 065
     Dates: start: 20211005, end: 20211005
  2. VALTREX [Concomitant]
     Active Substance: VALACYCLOVIR HYDROCHLORIDE
     Indication: Prophylaxis
     Dosage: 500 MG, BID
     Dates: start: 202111
  3. PEGFILGRASTIM [Concomitant]
     Active Substance: PEGFILGRASTIM
     Indication: Neutropenia
     Dosage: 6MG 1X/W (FREQUENCY  DEPENDING ON  NEUTROPHILS COUNT)
     Dates: start: 20211116, end: 202208
  4. NPLATE [Concomitant]
     Active Substance: ROMIPLOSTIM
     Indication: Thrombocytopenia
     Dosage: 500MCG 1X/W
     Dates: start: 20220304, end: 202208
  5. ARANESP [Concomitant]
     Active Substance: DARBEPOETIN ALFA
     Indication: Anaemia
     Dosage: 6.75MCG/KG 1X/3W
     Dates: start: 20220414, end: 20220815
  6. CRESEMBA [Concomitant]
     Active Substance: ISAVUCONAZONIUM SULFATE
     Indication: Prophylaxis
     Dosage: 100MG 2X/DAY
     Dates: start: 202204, end: 202302
  7. PENTAMIDINE [Concomitant]
     Active Substance: PENTAMIDINE
     Indication: Prophylaxis
     Dosage: 300MG 1X/MONTH
     Dates: start: 20220105

REACTIONS (5)
  - Second primary malignancy [Unknown]
  - Disease progression [Unknown]
  - Paraproteinaemia [Recovered/Resolved]
  - Paraproteinaemia [Unknown]
  - Myelodysplastic syndrome [Not Recovered/Not Resolved]

NARRATIVE: CASE EVENT DATE: 20220429
